FAERS Safety Report 8573247-0 (Version None)
Quarter: 2012Q3

REPORT INFORMATION
  Report Type: 
  Country: None (occurrence: None)
  Receive Date: 20120806
  Receipt Date: 20120730
  Transmission Date: 20120928
  Serious: Yes (Life-Threatening, Hospitalization)
  Sender: FDA-Public Use
  Company Number: DE-ROCHE-1097184

PATIENT
  Sex: Male
  Weight: 75.5 kg

DRUGS (1)
  1. MIRCERA [Suspect]
     Indication: NEPHROGENIC ANAEMIA
     Dosage: LAST DOSE PRIOR TO SAE: 28/FEB/2012, DOSE FORM PREFILLED SYRINGE
     Route: 058
     Dates: start: 20110510

REACTIONS (1)
  - AORTIC VALVE STENOSIS [None]
